FAERS Safety Report 12950766 (Version 1)
Quarter: 2016Q4

REPORT INFORMATION
  Report Type: Spontaneous
  Country: US (occurrence: US)
  Receive Date: 20161116
  Receipt Date: 20161116
  Transmission Date: 20170207
  Serious: No
  Sender: FDA-Public Use
  Company Number: US-ASTRAZENECA-2016SF18644

PATIENT
  Sex: Female
  Weight: 66.2 kg

DRUGS (3)
  1. METOPROLOL. [Suspect]
     Active Substance: METOPROLOL
     Indication: BLOOD PRESSURE ABNORMAL
     Route: 048
  2. SPIRONO HCTZ [Concomitant]
     Dosage: 25.0MG UNKNOWN
     Route: 048
  3. PULMICORT FLEXHALER [Suspect]
     Active Substance: BUDESONIDE
     Indication: ASTHMA
     Dosage: 180 MCG, 2 PUFFS ONCE A DAY
     Route: 055
     Dates: start: 20161104

REACTIONS (5)
  - Lung disorder [Unknown]
  - Asthma [Unknown]
  - Pulmonary congestion [Unknown]
  - Cough [Unknown]
  - Off label use [Unknown]
